FAERS Safety Report 16906791 (Version 3)
Quarter: 2019Q4

REPORT INFORMATION
  Report Type: Spontaneous
  Country: GB (occurrence: GB)
  Receive Date: 20191011
  Receipt Date: 20191209
  Transmission Date: 20200122
  Serious: Yes (Other)
  Sender: FDA-Public Use
  Company Number: GB-009507513-1910GBR006571

PATIENT
  Age: 76 Year
  Sex: Male

DRUGS (8)
  1. NAPROXEN. [Concomitant]
     Active Substance: NAPROXEN
     Dosage: 250 MILLIGRAM, PRN, (ALSO REPORTED AS TWICE DAILY)
  2. SINEMET [Suspect]
     Active Substance: CARBIDOPA\LEVODOPA
     Indication: PARKINSON^S DISEASE
     Dosage: 25MG/100MG. NIGHT
  3. SINEMET [Suspect]
     Active Substance: CARBIDOPA\LEVODOPA
     Indication: PARKINSON^S DISEASE
     Dosage: 12.5MG/50MG. TWICE AT 8AM + 12 NOON. ONCE AT 4PM + 8PM.
  4. PSYLLIUM HUSK. [Concomitant]
     Active Substance: PSYLLIUM HUSK
     Dosage: 7 GRAM, QD
  5. RANITIDINE. [Concomitant]
     Active Substance: RANITIDINE
     Dosage: 300 MILLIGRAM, QD
  6. MIDODRINE HYDROCHLORIDE. [Concomitant]
     Active Substance: MIDODRINE HYDROCHLORIDE
     Dosage: 22.5 MILLIGRAM, QD
  7. CYANOCOBALAMIN. [Concomitant]
     Active Substance: CYANOCOBALAMIN
     Dosage: 150 MICROGRAM, QD
  8. RIVASTIGMINE. [Concomitant]
     Active Substance: RIVASTIGMINE
     Dosage: 1 DOSAGE FORM, QD (ALSO REPORTED AS 9.5MG/24HOURS)

REACTIONS (7)
  - Spindle cell sarcoma [Unknown]
  - Sarcoma of skin [Unknown]
  - Squamous cell carcinoma [Unknown]
  - Malignant melanoma [Unknown]
  - Lentigo maligna [Unknown]
  - Atypical fibroxanthoma [Unknown]
  - Squamous cell carcinoma of skin [Unknown]

NARRATIVE: CASE EVENT DATE: 201807
